FAERS Safety Report 4338603-5 (Version None)
Quarter: 2004Q2

REPORT INFORMATION
  Report Type: 
  Country: None (occurrence: None)
  Receive Date: 20040414
  Receipt Date: 20040409
  Transmission Date: 20050107
  Serious: Yes (Hospitalization)
  Sender: FDA-Public Use
  Company Number: US-MERCK-0404USA01098

PATIENT
  Sex: Male

DRUGS (3)
  1. FOSAMAX [Suspect]
     Route: 048
  2. ASPIRIN [Concomitant]
     Route: 065
  3. VIOXX [Suspect]
     Route: 048

REACTIONS (1)
  - OESOPHAGEAL HAEMORRHAGE [None]
